FAERS Safety Report 4683260-1 (Version None)
Quarter: 2005Q2

REPORT INFORMATION
  Report Type: 
  Country: None (occurrence: None)
  Receive Date: 20050602
  Receipt Date: 20050202
  Transmission Date: 20051028
  Serious: No
  Sender: FDA-Public Use
  Company Number: USA050289726

PATIENT
  Age: 80 Year
  Sex: Female

DRUGS (1)
  1. CYMBALTA [Suspect]
     Dosage: 30 MG DAY
     Dates: start: 20050128

REACTIONS (1)
  - DEMENTIA ALZHEIMER'S TYPE [None]
